FAERS Safety Report 25173122 (Version 1)
Quarter: 2025Q2

REPORT INFORMATION
  Report Type: Spontaneous
  Country: HR (occurrence: HR)
  Receive Date: 20250408
  Receipt Date: 20250408
  Transmission Date: 20250717
  Serious: Yes (Other)
  Sender: TEVA
  Company Number: None

PATIENT
  Age: 50 Year
  Sex: Female

DRUGS (3)
  1. PREGABALIN [Suspect]
     Active Substance: PREGABALIN
     Indication: Product used for unknown indication
     Dosage: 1 DF = 1 TABLET
     Route: 048
     Dates: start: 20250205, end: 20250205
  2. AMISULPRIDE [Suspect]
     Active Substance: AMISULPRIDE
     Indication: Product used for unknown indication
     Route: 048
     Dates: start: 20250205, end: 20250205
  3. CARBAMAZEPINE [Suspect]
     Active Substance: CARBAMAZEPINE
     Indication: Product used for unknown indication
     Dosage: 1 DF = 1 TABLET
     Route: 048
     Dates: start: 20250205, end: 20250205

REACTIONS (2)
  - Suicide attempt [Unknown]
  - Vision blurred [Unknown]

NARRATIVE: CASE EVENT DATE: 20250205
